FAERS Safety Report 20526668 (Version 2)
Quarter: 2022Q1

REPORT INFORMATION
  Report Type: Spontaneous
  Country: PL (occurrence: PL)
  Receive Date: 20220228
  Receipt Date: 20220329
  Transmission Date: 20220423
  Serious: Yes (Hospitalization, Other)
  Sender: FDA-Public Use
  Company Number: PL-AstraZeneca-2021A679790

PATIENT
  Age: 70 Year
  Sex: Female

DRUGS (23)
  1. CARBOPLATIN [Suspect]
     Active Substance: CARBOPLATIN
     Indication: Endometrial cancer
     Dosage: 395 MG, SINGLE
     Route: 042
     Dates: start: 20210420, end: 20210420
  2. CARBOPLATIN [Suspect]
     Active Substance: CARBOPLATIN
     Dosage: 300 MG, SINGLE
     Route: 042
     Dates: start: 20210511, end: 20210511
  3. CARBOPLATIN [Suspect]
     Active Substance: CARBOPLATIN
     Dosage: 290 MG, SINGLE
     Route: 042
     Dates: start: 20210601, end: 20210601
  4. CARBOPLATIN [Suspect]
     Active Substance: CARBOPLATIN
     Dosage: 305 MG, SINGLE
     Route: 042
     Dates: start: 20210622, end: 20210622
  5. CARBOPLATIN [Suspect]
     Active Substance: CARBOPLATIN
     Dosage: 280 MG, SINGLE
     Route: 042
     Dates: start: 20210713, end: 20210713
  6. PACLITAXEL [Suspect]
     Active Substance: PACLITAXEL
     Indication: Endometrial cancer
     Dosage: 175 MG/M2, EVERY 3 WEEKS
     Route: 042
     Dates: start: 20210420, end: 20210713
  7. CLEMASTINUM [CLEMASTINE FUMARATE] [Concomitant]
     Indication: Prophylaxis
     Dosage: 2 MG BEFORE EACH CYCLE OF CHEMOTHERAPY
     Route: 042
     Dates: start: 20210420
  8. MAGNESIUM SULFATE [Concomitant]
     Active Substance: MAGNESIUM SULFATE
     Indication: Fluid replacement
     Dosage: 1 AMPOULE DAILY
     Route: 042
     Dates: start: 20210419, end: 20210419
  9. MAGNESIUM SULFATE [Concomitant]
     Active Substance: MAGNESIUM SULFATE
     Dosage: 1 AMPOULE BEFORE EACH CYCLE OF CHEMOTHERAPY (MGSO4)
     Route: 042
     Dates: start: 20210420
  10. HYDROCORTISONUM [HYDROCORTISONE] [Concomitant]
     Indication: Prophylaxis
     Dosage: 200 MG BEFORE EACH CYCLE OF CHEMOTHERAPY
     Route: 042
     Dates: start: 20210420
  11. FILGRASTIM [Concomitant]
     Active Substance: FILGRASTIM
     Indication: Prophylaxis
     Route: 058
     Dates: start: 20210512
  12. EUTHYROX [Concomitant]
     Active Substance: LEVOTHYROXINE SODIUM
     Indication: Autoimmune thyroiditis
     Route: 048
     Dates: start: 2010
  13. FUROSEMIDE [Concomitant]
     Active Substance: FUROSEMIDE
     Indication: Peripheral swelling
     Route: 048
     Dates: start: 20210301
  14. FUROSEMIDE [Concomitant]
     Active Substance: FUROSEMIDE
     Indication: Premedication
     Dosage: 1 AMPOULE, BEFORE EACH CYCLE OF CHEMOTHERAPY
     Route: 042
     Dates: start: 20210419
  15. POTASSIUM CHLORIDE [Concomitant]
     Active Substance: POTASSIUM CHLORIDE
     Indication: Hypokalaemia
     Route: 048
     Dates: start: 20210511, end: 20210621
  16. ONDANSETRON [Concomitant]
     Active Substance: ONDANSETRON
     Indication: Prophylaxis
     Dosage: 8 MG BEFORE EACH CYCLE OF CHEMOTHERAPY
     Route: 042
     Dates: start: 20210420
  17. ATOSSA [ONDANSETRON] [Concomitant]
     Indication: Vomiting
     Route: 048
     Dates: start: 20210420
  18. ATOSSA [ONDANSETRON] [Concomitant]
     Indication: Nausea
  19. TORECAN [Concomitant]
     Active Substance: THIETHYLPERAZINE MALATE
     Indication: Constipation
     Dosage: 1 DF, 2X/DAY (FREQ:12 H)
     Route: 054
     Dates: start: 20210420
  20. DEXAMETHASONE PHOSPHATE [Concomitant]
     Active Substance: DEXAMETHASONE PHOSPHATE
     Indication: Prophylaxis
     Dosage: 20 MG BEFORE EACH CYCLE OF CHEMOTHERAPY
     Route: 042
     Dates: start: 20210420
  21. SODIUM CHLORIDE [Concomitant]
     Active Substance: SODIUM CHLORIDE
     Indication: Fluid replacement
     Dosage: 250 ML, 1X/DAY
     Route: 042
     Dates: start: 20210419, end: 20210419
  22. SODIUM CHLORIDE [Concomitant]
     Active Substance: SODIUM CHLORIDE
     Dosage: 1000 ML BEFORE EACH CYCLE OF CHEMOTHERAPY
     Route: 042
     Dates: start: 20210420
  23. AUGMENTIN [Concomitant]
     Active Substance: AMOXICILLIN\CLAVULANATE POTASSIUM
     Indication: Urinary tract infection
     Dosage: 1000 MG, 2X/DAY (FREQ:12 H)
     Route: 048
     Dates: start: 20210804, end: 20210810

REACTIONS (2)
  - Thrombosis [Recovered/Resolved]
  - Off label use [Unknown]

NARRATIVE: CASE EVENT DATE: 20210511
